FAERS Safety Report 10564605 (Version 1)
Quarter: 2014Q4

REPORT INFORMATION
  Report Type: Spontaneous
  Country: US (occurrence: US)
  Receive Date: 20141104
  Receipt Date: 20141104
  Transmission Date: 20150529
  Serious: No
  Sender: FDA-Public Use
  Company Number: US-MALLINCKRODT-T201402100

PATIENT
  Age: 53 Year
  Sex: Male

DRUGS (2)
  1. FENTANYL CITRATE. [Suspect]
     Active Substance: FENTANYL CITRATE
     Dosage: 1600 MCG, UNK
     Route: 048
  2. FENTANYL CITRATE. [Suspect]
     Active Substance: FENTANYL CITRATE
     Indication: BREAKTHROUGH PAIN
     Dosage: 200 MCG, 3-4 TIMES A DAY PRN
     Route: 048
     Dates: end: 20140505

REACTIONS (1)
  - Product use issue [Not Recovered/Not Resolved]
